FAERS Safety Report 4678482-X (Version None)
Quarter: 2005Q2

REPORT INFORMATION
  Report Type: 
  Country: None (occurrence: None)
  Receive Date: 20050601
  Receipt Date: 20050526
  Transmission Date: 20051028
  Serious: Yes (Death)
  Sender: FDA-Public Use
  Company Number: PHBS2005JP07503

PATIENT
  Age: 81 Year
  Sex: Male

DRUGS (5)
  1. VOLTAREN [Suspect]
     Indication: SPINAL COMPRESSION FRACTURE
     Dosage: 25 MG/DAY
     Route: 054
     Dates: start: 20011101, end: 20011228
  2. LOXONIN [Suspect]
     Indication: SPINAL COMPRESSION FRACTURE
     Route: 048
     Dates: end: 20011228
  3. IBUPROFEN [Suspect]
     Route: 048
     Dates: end: 20011228
  4. PERMAX [Suspect]
     Indication: PARKINSON'S DISEASE
     Dosage: 250 MG/DAY
     Route: 048
     Dates: end: 20011228
  5. MINOCYCLINE HCL [Suspect]
     Dosage: 50 MG/DAY
     Route: 048
     Dates: end: 20011228

REACTIONS (1)
  - INTERSTITIAL LUNG DISEASE [None]
